FAERS Safety Report 15394874 (Version 1)
Quarter: 2018Q3

REPORT INFORMATION
  Report Type: Spontaneous
  Country: US (occurrence: US)
  Receive Date: 20180911
  Receipt Date: 20180911
  Transmission Date: 20181010
  Serious: Yes (Death, Hospitalization)
  Sender: FDA-Public Use
  Company Number: None

PATIENT
  Age: 53 Year
  Sex: Female

DRUGS (12)
  1. OMEPRAZOLE. [Concomitant]
     Active Substance: OMEPRAZOLE
  2. IBRANCE [Suspect]
     Active Substance: PALBOCICLIB
     Indication: BREAST CANCER
     Route: 048
     Dates: start: 20160203
  3. CALC ACETATE [Concomitant]
     Active Substance: CALCIUM ACETATE
  4. IBRANCE [Concomitant]
     Active Substance: PALBOCICLIB
  5. ZOLPIDEM [Concomitant]
     Active Substance: ZOLPIDEM\ZOLPIDEM TARTRATE
  6. CILOSTAZOL. [Concomitant]
     Active Substance: CILOSTAZOL
  7. CYCLOBENZAPRINE. [Concomitant]
     Active Substance: CYCLOBENZAPRINE
  8. SENNA [Concomitant]
     Active Substance: SENNA LEAF\SENNOSIDES\SENNOSIDES A AND B
  9. SUCRALFATE. [Concomitant]
     Active Substance: SUCRALFATE
  10. CARVEDILOL. [Concomitant]
     Active Substance: CARVEDILOL
  11. FLUTICASONE. [Concomitant]
     Active Substance: FLUTICASONE
  12. LETROZOLE. [Concomitant]
     Active Substance: LETROZOLE

REACTIONS (1)
  - Hospitalisation [None]

NARRATIVE: CASE EVENT DATE: 20180911
